FAERS Safety Report 15029522 (Version 1)
Quarter: 2018Q2

REPORT INFORMATION
  Report Type: Spontaneous
  Country: US (occurrence: US)
  Receive Date: 20180619
  Receipt Date: 20180619
  Transmission Date: 20180711
  Serious: No
  Sender: FDA-Public Use
  Company Number: US-BAYER-2018-098863

PATIENT
  Age: 1 Year
  Sex: Female

DRUGS (1)
  1. MIRALAX [Suspect]
     Active Substance: POLYETHYLENE GLYCOL 3350
     Indication: CONSTIPATION
     Dosage: ONE CAPFUL , QD
     Dates: start: 201701, end: 201704

REACTIONS (2)
  - Crying [Recovered/Resolved]
  - Anger [Recovered/Resolved]
